FAERS Safety Report 7503893-4 (Version None)
Quarter: 2011Q2

REPORT INFORMATION
  Report Type: 
  Country: None (occurrence: None)
  Receive Date: 20110518
  Receipt Date: 20110503
  Transmission Date: 20111010
  Serious: Yes (Hospitalization)
  Sender: FDA-Public Use
  Company Number: 2010003140

PATIENT
  Age: 60 Year
  Sex: Male
  Weight: 95 kg

DRUGS (13)
  1. FUROSEMIDE [Concomitant]
  2. PERINDOPRIL (PERINDOPRIL) [Concomitant]
  3. BENZYDAMINE HYDROCHLORIDE (BENZYDAMINE HYDROCHLORIDE) [Concomitant]
  4. LERCANIDIPINE [Concomitant]
  5. GASTROGRAFIN [Concomitant]
  6. IBUPROFEN [Concomitant]
  7. ALLANTOIN (ALLANTOIN) [Concomitant]
  8. POTASSIUM CHLORIDE [Concomitant]
  9. NIOPAM (IOPAMIDOL) [Concomitant]
  10. SORAFENIB [Suspect]
     Indication: HEPATIC NEOPLASM MALIGNANT
     Dosage: (800 MG,QD), ORAL
     Route: 048
     Dates: start: 20091124, end: 20091207
  11. OXYETRACYCLINE (OXYTETRACYCLINE) [Concomitant]
  12. ERLOTINIB HYDROCHLORIDE [Suspect]
     Indication: HEPATIC NEOPLASM MALIGNANT
     Dosage: (150 MG,QD), ORAL
     Route: 048
     Dates: start: 20091124, end: 20091207
  13. SLOW-K [Concomitant]

REACTIONS (1)
  - ANAEMIA [None]
